FAERS Safety Report 13954367 (Version 1)
Quarter: 2017Q3

REPORT INFORMATION
  Report Type: Spontaneous
  Country: US (occurrence: US)
  Receive Date: 20170909
  Receipt Date: 20170909
  Transmission Date: 20171128
  Serious: No
  Sender: FDA-Public Use
  Company Number: None

PATIENT
  Age: 57 Year
  Sex: Female
  Weight: 60.75 kg

DRUGS (3)
  1. RALOXIFENE 60MG [Suspect]
     Active Substance: RALOXIFENE
     Indication: OSTEOPENIA
     Dosage: ?          QUANTITY:1 CAPSULE(S);?
     Route: 048
     Dates: start: 20170822, end: 20170909
  2. MULTIVITAMIN FOR WOMEN OVER 50 [Concomitant]
  3. MULTIVITAMIN AND CALCIUM (TUMS) [Concomitant]

REACTIONS (4)
  - Abdominal distension [None]
  - Constipation [None]
  - Flatulence [None]
  - Product substitution issue [None]

NARRATIVE: CASE EVENT DATE: 20170909
